FAERS Safety Report 6011151-2 (Version None)
Quarter: 2008Q4

REPORT INFORMATION
  Report Type: 
  Country: None (occurrence: None)
  Receive Date: 20081217
  Receipt Date: 20081217
  Transmission Date: 20090506
  Serious: Yes (Disabling)
  Sender: FDA-Public Use
  Company Number: None

PATIENT
  Age: 62 Year
  Sex: Male
  Weight: 88.4514 kg

DRUGS (1)
  1. VYTORIN [Suspect]
     Indication: BLOOD CHOLESTEROL
     Dosage: 80 MG DAILY PO
     Route: 048
     Dates: start: 20070201, end: 20081128

REACTIONS (6)
  - GAIT DISTURBANCE [None]
  - MENTAL DISORDER [None]
  - MUSCULAR WEAKNESS [None]
  - MYOPATHY [None]
  - PAIN IN EXTREMITY [None]
  - SENSATION OF HEAVINESS [None]
